FAERS Safety Report 16350334 (Version 6)
Quarter: 2020Q3

REPORT INFORMATION
  Report Type: Report from Study
  Country: US (occurrence: US)
  Receive Date: 20190524
  Receipt Date: 20200813
  Transmission Date: 20201102
  Serious: Yes (Hospitalization)
  Sender: FDA-Public Use
  Company Number: US-AMGEN-USACT2019081961

PATIENT
  Age: 16 Year
  Sex: Female
  Weight: 32.5 kg

DRUGS (8)
  1. OXYCODONE [Concomitant]
     Active Substance: OXYCODONE
     Dosage: 5 MILLIGRAM
     Route: 048
     Dates: start: 20151215
  2. HYDROCODONE [Concomitant]
     Active Substance: HYDROCODONE
     Dosage: 0.5 UNK
     Route: 048
     Dates: start: 20030701
  3. VALIUM [Concomitant]
     Active Substance: DIAZEPAM
     Dosage: 1 MILLIGRAM
     Route: 048
     Dates: start: 20030223
  4. VITAMIN D [ERGOCALCIFEROL] [Concomitant]
     Active Substance: ERGOCALCIFEROL
     Dosage: 1000 INTERNATIONAL UNIT
     Route: 048
     Dates: start: 20180801
  5. DENOSUMAB [Suspect]
     Active Substance: DENOSUMAB
     Indication: OSTEOGENESIS IMPERFECTA
     Dosage: 0.47 MILLILITER, Q6MO
     Route: 058
     Dates: start: 20180801
  6. CALCIUM [Concomitant]
     Active Substance: CALCIUM
     Dosage: 1000 MILLIGRAM
     Route: 048
     Dates: start: 20180801
  7. MOTRIN [Concomitant]
     Active Substance: IBUPROFEN
     Dosage: 300 MILLIGRAM
     Route: 048
     Dates: start: 20030701
  8. TYLENOL [Concomitant]
     Active Substance: ACETAMINOPHEN
     Dosage: 480 MILLIGRAM
     Route: 048
     Dates: start: 20030223

REACTIONS (1)
  - Humerus fracture [Not Recovered/Not Resolved]

NARRATIVE: CASE EVENT DATE: 20190519
